FAERS Safety Report 8423439-6 (Version None)
Quarter: 2012Q2

REPORT INFORMATION
  Report Type: 
  Country: None (occurrence: None)
  Receive Date: 20120608
  Receipt Date: 20120530
  Transmission Date: 20120825
  Serious: Yes (Other)
  Sender: FDA-Public Use
  Company Number: US-ASTRAZENECA-2012SE35487

PATIENT
  Age: 27 Year
  Sex: Female

DRUGS (4)
  1. SEROQUEL XR [Suspect]
     Indication: ANXIETY
     Route: 048
     Dates: end: 20120401
  2. DEPAKOTE ER [Concomitant]
     Indication: BIPOLAR DISORDER
  3. ZOLOFT [Suspect]
     Indication: BIPOLAR DISORDER
     Route: 048
     Dates: start: 20110801
  4. ZOLOFT [Suspect]
     Route: 048

REACTIONS (5)
  - DEPRESSED MOOD [None]
  - PAIN [None]
  - PSYCHOMOTOR SKILLS IMPAIRED [None]
  - ANXIETY [None]
  - GAIT DISTURBANCE [None]
